FAERS Safety Report 4740862-1 (Version None)
Quarter: 2005Q3

REPORT INFORMATION
  Report Type: 
  Country: None (occurrence: None)
  Receive Date: 20050810
  Receipt Date: 20050106
  Transmission Date: 20060218
  Serious: No
  Sender: FDA-Public Use
  Company Number: US-GLAXOSMITHKLINE-A0539654A

PATIENT
  Age: 18 Year
  Sex: Male

DRUGS (1)
  1. TAGAMET HB 200 [Suspect]
     Indication: DRUG USE FOR UNKNOWN INDICATION
     Dates: start: 20050106

REACTIONS (4)
  - FEELING HOT [None]
  - PRURITUS GENERALISED [None]
  - SENSATION OF FOREIGN BODY [None]
  - URTICARIA [None]
